FAERS Safety Report 6451249-8 (Version None)
Quarter: 2009Q4

REPORT INFORMATION
  Report Type: 
  Country: None (occurrence: None)
  Receive Date: 20091123
  Receipt Date: 20091118
  Transmission Date: 20100525
  Serious: Yes (Other)
  Sender: FDA-Public Use
  Company Number: JP-SANOFI-AVENTIS-2009SA002808

PATIENT
  Age: 50 Year
  Sex: Male

DRUGS (4)
  1. TAXOTERE [Suspect]
     Indication: METASTASES TO THE MEDIASTINUM
  2. FLUOROURACIL [Concomitant]
     Indication: METASTASES TO THE MEDIASTINUM
  3. CISPLATIN [Concomitant]
     Indication: METASTASES TO THE MEDIASTINUM
  4. ALL OTHER THERAPEUTIC PRODUCTS [Concomitant]
     Indication: METASTASES TO THE MEDIASTINUM

REACTIONS (3)
  - ANAEMIA [None]
  - PNEUMONIA [None]
  - PULMONARY INFARCTION [None]
